FAERS Safety Report 12326535 (Version 1)
Quarter: 2016Q2

REPORT INFORMATION
  Report Type: Spontaneous
  Country: US (occurrence: None)
  Receive Date: 20160502
  Receipt Date: 20160502
  Transmission Date: 20160815
  Serious: No
  Sender: FDA-Public Use
  Company Number: None

PATIENT
  Age: 42 Year
  Sex: Female
  Weight: 72.58 kg

DRUGS (8)
  1. OXYCODONE [Concomitant]
     Active Substance: OXYCODONE
  2. METOPROLOL. [Concomitant]
     Active Substance: METOPROLOL
  3. ASPRIN [Concomitant]
     Active Substance: ASPIRIN
  4. LACEX [Concomitant]
  5. CYCLOBENZAPRINE [Concomitant]
     Active Substance: CYCLOBENZAPRINE
  6. ADVIL [Concomitant]
     Active Substance: IBUPROFEN
  7. ATORVASTATIN [Suspect]
     Active Substance: ATORVASTATIN
     Indication: CARDIAC OPERATION
     Route: 048
     Dates: start: 20160206, end: 20160325
  8. POTASSIUM [Concomitant]
     Active Substance: POTASSIUM

REACTIONS (5)
  - Musculoskeletal stiffness [None]
  - Musculoskeletal pain [None]
  - Pain in extremity [None]
  - Myalgia [None]
  - Arthralgia [None]

NARRATIVE: CASE EVENT DATE: 20160325
